FAERS Safety Report 5649836-X (Version None)
Quarter: 2008Q1

REPORT INFORMATION
  Report Type: 
  Country: None (occurrence: None)
  Receive Date: 20080304
  Receipt Date: 20080225
  Transmission Date: 20080703
  Serious: Yes (Death)
  Sender: FDA-Public Use
  Company Number: AU-GENENTECH-255788

PATIENT
  Sex: Male

DRUGS (25)
  1. PLACEBO [Suspect]
     Indication: NON-SMALL CELL LUNG CANCER
     Dosage: 620 MG, UNK
     Route: 042
     Dates: start: 20080108
  2. BEVACIZUMAB [Suspect]
     Indication: NON-SMALL CELL LUNG CANCER
     Dosage: 930 MG, UNK
     Route: 042
     Dates: start: 20080108
  3. PACLITAXEL [Suspect]
     Indication: NON-SMALL CELL LUNG CANCER
     Dosage: 350 MG, UNK
     Route: 042
     Dates: start: 20080108
  4. CARBOPLATIN [Suspect]
     Indication: NON-SMALL CELL LUNG CANCER
     Dosage: 650 MG, UNK
     Route: 042
     Dates: start: 20080108
  5. ACETAMINOPHEN [Concomitant]
     Indication: PAIN
     Dosage: 1 G, TID
     Dates: start: 20080116, end: 20080207
  6. ACETAMINOPHEN [Concomitant]
     Dosage: 1 G, QID
     Dates: start: 20080208, end: 20080210
  7. KAPANOL [Concomitant]
     Indication: PAIN
     Dates: start: 20080125, end: 20080130
  8. KAPANOL [Concomitant]
     Dosage: 30 MG, UNK
     Dates: start: 20080208, end: 20080210
  9. KAPANOL [Concomitant]
     Dates: start: 20080131, end: 20080207
  10. MOVICOL [Concomitant]
     Indication: CONSTIPATION
     Dates: start: 20080208, end: 20080210
  11. MIRALAX [Concomitant]
     Indication: CONSTIPATION
     Dates: start: 20080208, end: 20080208
  12. HALOPERIDOL [Concomitant]
     Indication: AGITATION
     Dosage: 0.5 MG, UNK
     Route: 042
     Dates: start: 20080210, end: 20080210
  13. MAXOLON [Concomitant]
     Indication: NAUSEA
     Dosage: 10 MG, UNK
     Dates: start: 20080208, end: 20080208
  14. MORPHINE [Concomitant]
     Indication: PAIN
     Dosage: 5 MG, UNK
     Dates: start: 20080209, end: 20080209
  15. HEPARIN [Concomitant]
     Indication: THROMBOSIS PROPHYLAXIS
     Dosage: 5000 IU/ML, UNK
     Dates: end: 20080131
  16. AMITRIPTYLINE HCL [Concomitant]
     Indication: NEURALGIA
     Dosage: UNK MG, UNK
     Dates: start: 20080131, end: 20080210
  17. DEXAMETHASONE TAB [Concomitant]
     Indication: PREMEDICATION
     Dosage: 20 MG, UNK
     Dates: start: 20080107
  18. DEXAMETHASONE TAB [Concomitant]
     Dosage: 4 MG, UNK
     Dates: start: 20080109
  19. LORATADINE [Concomitant]
     Indication: PREMEDICATION
     Dosage: 10 MG, UNK
     Dates: start: 20080108
  20. RANITIDINE [Concomitant]
     Indication: PREMEDICATION
     Dosage: 50 MG, UNK
     Route: 042
     Dates: start: 20080108
  21. ONDANSETRON [Concomitant]
     Indication: PROPHYLAXIS OF NAUSEA AND VOMITING
     Dosage: 8 MG, UNK
     Route: 048
     Dates: start: 20080108
  22. NEXIUM [Concomitant]
     Indication: PROPHYLAXIS OF NAUSEA AND VOMITING
     Dosage: 40 MG, UNK
     Dates: start: 20080117, end: 20080210
  23. MAGMIN [Concomitant]
     Indication: ELECTROLYTE IMBALANCE
     Dosage: 500 MG, UNK
     Dates: start: 20080117, end: 20080207
  24. VOLTAREN [Concomitant]
     Indication: PAIN
     Dosage: UNK, UNK
     Dates: start: 20080118, end: 20080207
  25. VALIUM [Concomitant]
     Indication: AGITATION
     Dosage: 5 MG, UNK
     Dates: start: 20080209, end: 20080209

REACTIONS (1)
  - RESPIRATORY ARREST [None]
